FAERS Safety Report 7967953-6 (Version None)
Quarter: 2011Q4

REPORT INFORMATION
  Report Type: 
  Country: None (occurrence: None)
  Receive Date: 20111207
  Receipt Date: 20111207
  Transmission Date: 20120403
  Serious: Yes (Other)
  Sender: FDA-Public Use
  Company Number: None

PATIENT
  Sex: Female
  Weight: 100.6985 kg

DRUGS (3)
  1. VICODIN [Suspect]
     Indication: JOINT INJURY
     Dosage: 1 TABLET TWICE A DAY AS NEEDED
     Dates: start: 20111112
  2. VICODIN [Suspect]
     Indication: PAIN
     Dosage: 1 TABLET TWICE A DAY AS NEEDED
     Dates: start: 20111112
  3. VICODIN [Suspect]
     Indication: FOOT FRACTURE
     Dosage: 1 TABLET TWICE A DAY AS NEEDED
     Dates: start: 20111112

REACTIONS (3)
  - PRODUCT QUALITY ISSUE [None]
  - CONTUSION [None]
  - INADEQUATE ANALGESIA [None]
